FAERS Safety Report 7207799-X (Version None)
Quarter: 2011Q1

REPORT INFORMATION
  Report Type: 
  Country: None (occurrence: None)
  Receive Date: 20110104
  Receipt Date: 20101226
  Transmission Date: 20110831
  Serious: Yes (Other)
  Sender: FDA-Public Use
  Company Number: IL-AMGEN-ISRSP2010012263

PATIENT

DRUGS (3)
  1. SALAZOPYRIN [Concomitant]
  2. ENBREL [Suspect]
     Indication: RHEUMATOID ARTHRITIS
     Dosage: 25 MG, 2X/WEEK
     Dates: start: 20101101, end: 20100101
  3. METHOTREXATE SODIUM [Concomitant]

REACTIONS (1)
  - PROSTATE CANCER [None]
